FAERS Safety Report 11762225 (Version 1)
Quarter: 2015Q4

REPORT INFORMATION
  Report Type: Spontaneous
  Country: US (occurrence: US)
  Receive Date: 20151120
  Receipt Date: 20151120
  Transmission Date: 20160304
  Serious: No
  Sender: FDA-Public Use
  Company Number: US-ELI_LILLY_AND_COMPANY-US201212004537

PATIENT
  Sex: Female
  Weight: 52.16 kg

DRUGS (2)
  1. FORTEO [Suspect]
     Active Substance: TERIPARATIDE
     Indication: OSTEOPOROSIS
     Dosage: 20 UG, QD
     Route: 058
     Dates: start: 2012, end: 20121129
  2. CALCIUM [Concomitant]
     Active Substance: CALCIUM
     Indication: NUTRITIONAL SUPPLEMENTATION
     Dosage: 1000 MG, QD

REACTIONS (9)
  - Coeliac disease [Unknown]
  - Skin discolouration [Unknown]
  - Musculoskeletal disorder [Unknown]
  - Blood calcium increased [Recovered/Resolved]
  - Blood potassium increased [Unknown]
  - Abdominal pain upper [Unknown]
  - Paraesthesia [Unknown]
  - Hernia [Unknown]
  - Arthralgia [Unknown]

NARRATIVE: CASE EVENT DATE: 2012
